FAERS Safety Report 8804689 (Version 2)
Quarter: 2015Q2

REPORT INFORMATION
  Report Type: Report from Study
  Country: US (occurrence: US)
  Receive Date: 20120924
  Receipt Date: 20150402
  Transmission Date: 20150821
  Serious: Yes (Death)
  Sender: FDA-Public Use
  Company Number: US-ROCHE-1126851

PATIENT
  Sex: Male

DRUGS (2)
  1. AVASTIN [Suspect]
     Active Substance: BEVACIZUMAB
     Indication: OESOPHAGEAL CARCINOMA
  2. AVASTIN [Suspect]
     Active Substance: BEVACIZUMAB
     Indication: GASTRIC CANCER
     Route: 042
     Dates: start: 20081106

REACTIONS (2)
  - Death [Fatal]
  - Off label use [Unknown]
